FAERS Safety Report 6173045-1 (Version None)
Quarter: 2009Q2

REPORT INFORMATION
  Report Type: 
  Country: None (occurrence: None)
  Receive Date: 20090430
  Receipt Date: 20090421
  Transmission Date: 20091009
  Serious: Yes (Hospitalization)
  Sender: FDA-Public Use
  Company Number: CA-AMGEN-KDL343210

PATIENT
  Sex: Male
  Weight: 77.2 kg

DRUGS (2)
  1. ENBREL [Suspect]
     Indication: PSORIASIS
     Dates: start: 20090211, end: 20090216
  2. CORTICOSTEROIDS [Concomitant]
     Route: 061

REACTIONS (11)
  - ABDOMINAL PAIN [None]
  - AGITATION [None]
  - BACK PAIN [None]
  - BLOOD PRESSURE INCREASED [None]
  - COLD SWEAT [None]
  - DIARRHOEA [None]
  - HYPERSENSITIVITY [None]
  - LICHENOID KERATOSIS [None]
  - RASH MACULAR [None]
  - RIB FRACTURE [None]
  - VOMITING [None]
